FAERS Safety Report 7322454-3 (Version None)
Quarter: 2011Q1

REPORT INFORMATION
  Report Type: 
  Country: None (occurrence: None)
  Receive Date: 20110301
  Receipt Date: 20110221
  Transmission Date: 20110831
  Serious: Yes (Other)
  Sender: FDA-Public Use
  Company Number: FI-TEVA-268680ISR

PATIENT
  Age: 80 Year
  Sex: Female

DRUGS (1)
  1. ALENDRONIC ACID [Suspect]
     Dosage: 70 MG/WEEK

REACTIONS (1)
  - FEMUR FRACTURE [None]
